FAERS Safety Report 13834281 (Version 2)
Quarter: 2017Q3

REPORT INFORMATION
  Report Type: Report from Study
  Country: DE (occurrence: DE)
  Receive Date: 20170804
  Receipt Date: 20170807
  Transmission Date: 20171127
  Serious: Yes (Hospitalization)
  Sender: FDA-Public Use
  Company Number: DE-BIOGEN-2017BI00441240

PATIENT
  Age: 41 Year
  Sex: Female
  Weight: 75 kg

DRUGS (6)
  1. VITAMIN D [Concomitant]
     Active Substance: CHOLECALCIFEROL
     Indication: PROPHYLAXIS
     Route: 065
     Dates: start: 201001
  2. SERTRALINE [Concomitant]
     Active Substance: SERTRALINE HYDROCHLORIDE
     Indication: DEPRESSION
     Route: 065
     Dates: start: 201601
  3. ATORVASTATIN [Concomitant]
     Active Substance: ATORVASTATIN
     Indication: HYPERCHOLESTEROLAEMIA
     Route: 065
     Dates: start: 201706
  4. BACLOFEN. [Concomitant]
     Active Substance: BACLOFEN
     Indication: MUSCLE SPASTICITY
     Route: 065
     Dates: start: 201706
  5. ZINBRYTA [Suspect]
     Active Substance: DACLIZUMAB
     Indication: SECONDARY PROGRESSIVE MULTIPLE SCLEROSIS
     Route: 058
     Dates: start: 20170712
  6. OMACOR [Concomitant]
     Active Substance: OMEGA-3-ACID ETHYL ESTERS
     Indication: HYPERCHOLESTEROLAEMIA
     Route: 065
     Dates: start: 201706

REACTIONS (3)
  - Infection [Recovered/Resolved]
  - Dysphagia [Recovered/Resolved]
  - Aspiration [Recovered/Resolved]

NARRATIVE: CASE EVENT DATE: 20170720
